FAERS Safety Report 5818374-3 (Version None)
Quarter: 2008Q3

REPORT INFORMATION
  Report Type: 
  Country: None (occurrence: None)
  Receive Date: 20080716
  Receipt Date: 20080710
  Transmission Date: 20090109
  Serious: Yes (Death, Hospitalization)
  Sender: FDA-Public Use
  Company Number: 083-21880-08070239

PATIENT
  Age: 72 Year
  Sex: Male

DRUGS (3)
  1. REVLIMID [Suspect]
     Indication: ADULT T-CELL LYMPHOMA/LEUKAEMIA
     Dosage: 25 MG, EVERY OTHER DAY, ORAL
     Route: 048
     Dates: start: 20080616, end: 20080630
  2. REVLIMID [Suspect]
     Indication: WALDENSTROM'S MACROGLOBULINAEMIA
     Dosage: 25 MG, EVERY OTHER DAY, ORAL
     Route: 048
     Dates: start: 20080616, end: 20080630
  3. SELEDIE (NADROPARIN CALCIUM) (SOLUTION) [Concomitant]

REACTIONS (1)
  - ISCHAEMIC STROKE [None]
